FAERS Safety Report 8926251 (Version 2)
Quarter: 2013Q1

REPORT INFORMATION
  Report Type: Report from Study
  Country: CA (occurrence: CA)
  Receive Date: 20121126
  Receipt Date: 20130125
  Transmission Date: 20140127
  Serious: Yes (Other)
  Sender: FDA-Public Use
  Company Number: CA-ABBOTT-12P-028-1000024-00

PATIENT
  Age: 22 Year
  Sex: Female
  Weight: 39.5 kg

DRUGS (4)
  1. HUMIRA [Suspect]
     Indication: CROHN^S DISEASE
     Route: 058
     Dates: start: 20120501
  2. HUMIRA [Suspect]
  3. HUMIRA [Suspect]
  4. IMURAN (6-MERCAPTOPURINE) [Concomitant]
     Indication: PRODUCT USED FOR UNKNOWN INDICATION

REACTIONS (2)
  - Ileal stenosis [Recovered/Resolved]
  - Crohn^s disease [Unknown]
